FAERS Safety Report 9543359 (Version 3)
Quarter: 2013Q4

REPORT INFORMATION
  Report Type: Spontaneous
  Country: US (occurrence: US)
  Receive Date: 20130923
  Receipt Date: 20131227
  Transmission Date: 20140711
  Serious: No
  Sender: FDA-Public Use
  Company Number: US-JNJFOC-20130911575

PATIENT
  Age: 63 Year
  Sex: Male

DRUGS (6)
  1. DURAGESIC [Suspect]
     Indication: PAIN
     Route: 062
     Dates: start: 20091211
  2. OXYCODONE [Concomitant]
     Indication: PAIN
     Route: 065
  3. ZOLPIDEM [Concomitant]
     Indication: INSOMNIA
     Route: 065
  4. TRAZODONE [Concomitant]
     Indication: AFFECTIVE DISORDER
     Route: 065
  5. TRAZODONE [Concomitant]
     Indication: INSOMNIA
     Route: 065
  6. MIRALAX [Concomitant]
     Indication: CONSTIPATION
     Route: 065

REACTIONS (3)
  - Drug dose omission [Unknown]
  - Inadequate analgesia [Unknown]
  - Drug ineffective [Recovered/Resolved]
